FAERS Safety Report 18105102 (Version 8)
Quarter: 2021Q1

REPORT INFORMATION
  Report Type: Spontaneous
  Country: US (occurrence: US)
  Receive Date: 20200804
  Receipt Date: 20210322
  Transmission Date: 20210419
  Serious: Yes (Other)
  Sender: FDA-Public Use
  Company Number: US-DECIPHERA PHARMACEUTICALS LLC-2020-US-000302

PATIENT
  Sex: Female

DRUGS (5)
  1. ELIQUIS [Concomitant]
     Active Substance: APIXABAN
  2. QINLOCK [Suspect]
     Active Substance: RIPRETINIB
     Dosage: 150 MILLIGRAM, BID
     Route: 048
     Dates: start: 20200701
  3. QINLOCK [Suspect]
     Active Substance: RIPRETINIB
     Dosage: 150 MILLIGRAM, BID
     Route: 048
  4. QINLOCK [Suspect]
     Active Substance: RIPRETINIB
     Dosage: 150 MILLIGRAM, BID
     Route: 048
     Dates: end: 20210302
  5. QINLOCK [Suspect]
     Active Substance: RIPRETINIB
     Indication: GASTROINTESTINAL STROMAL TUMOUR
     Dosage: 150 MILLIGRAM, QD
     Route: 048
     Dates: start: 20200101

REACTIONS (18)
  - Weight decreased [Unknown]
  - Overdose [Unknown]
  - Tumour necrosis [Unknown]
  - Skin cancer [Unknown]
  - Skin disorder [Unknown]
  - Procedural pain [Unknown]
  - Fatigue [Unknown]
  - Neoplasm progression [Unknown]
  - Swelling [Unknown]
  - Decreased appetite [Unknown]
  - Therapeutic response unexpected [Unknown]
  - Alopecia [Unknown]
  - Anaemia [Unknown]
  - Drug ineffective [Unknown]
  - Immune thrombocytopenia [Unknown]
  - Night sweats [Unknown]
  - Insomnia [Unknown]
  - Product dose omission issue [Unknown]
